FAERS Safety Report 10034501 (Version 1)
Quarter: 2014Q1

REPORT INFORMATION
  Report Type: Spontaneous
  Country: US (occurrence: None)
  Receive Date: 20140306
  Receipt Date: 20140306
  Transmission Date: 20141002
  Serious: Yes (Other)
  Sender: FDA-Public Use
  Company Number: 163-21880-13021178

PATIENT
  Sex: 0

DRUGS (9)
  1. REVLIMID (LENALIDOMIDE) (CAPSULES) [Suspect]
     Indication: PLASMA CELL MYELOMA
     Dosage: 21 IN 28 D
     Route: 048
     Dates: start: 20120822
  2. ACY-1215 [Suspect]
     Indication: PLASMA CELL MYELOMA
     Dosage: DAYS 1, 8, 15, AND 22 OF 28 DAY CYCLE
  3. DEXAMETHASONE (DEXAMETHASONE) (UNKNOWN) [Suspect]
     Dosage: ON DAYS 1, 8, 15 AND 22 OF A 28 DAYS CYCLE
  4. AMLODIPINE [Concomitant]
  5. LISINOPRIL [Concomitant]
  6. MULTIVITAMINS [Concomitant]
  7. PRAVASTATIN [Concomitant]
  8. ASPIRIN (ACETYLSALICYLIC ACID) [Concomitant]
  9. OMEPRAZOLE [Concomitant]

REACTIONS (4)
  - Neutropenia [None]
  - Chest discomfort [None]
  - Upper respiratory tract infection [None]
  - Conjunctivitis [None]
